FAERS Safety Report 8607329 (Version 4)
Quarter: 2012Q4

REPORT INFORMATION
  Report Type: 
  Country: US (occurrence: US)
  Receive Date: 20120611
  Receipt Date: 20121107
  Transmission Date: 20130627
  Serious: Yes (Hospitalization)
  Sender: FDA-Public Use
  Company Number: US-BAYER-2012-055407

PATIENT
  Age: 39 Year
  Sex: Female

DRUGS (5)
  1. YAZ [Suspect]
     Dosage: UNK
     Dates: start: 2003, end: 2005
  2. LOTREL [Concomitant]
     Indication: HYPERTENSION
     Dosage: 10/20 mg
     Route: 048
     Dates: start: 20050310
  3. LOTREL [Concomitant]
     Indication: HYPERTENSION
     Dosage: UNK
     Dates: start: 1990
  4. DYAZIDE [Concomitant]
     Indication: HYPERTENSION
     Dosage: 37.5/25
     Route: 048
     Dates: start: 20050228
  5. DYAZIDE [Concomitant]
     Indication: HYPERTENSION
     Dosage: UNK
     Dates: start: 1990

REACTIONS (8)
  - Deep vein thrombosis [Recovering/Resolving]
  - Pain [None]
  - Emotional distress [None]
  - Oedema peripheral [Recovering/Resolving]
  - Injury [Recovering/Resolving]
  - General physical health deterioration [None]
  - Anxiety [None]
  - Anhedonia [None]
